FAERS Safety Report 9382521 (Version 3)
Quarter: 2014Q2

REPORT INFORMATION
  Report Type: Spontaneous
  Country: DE (occurrence: DE)
  Receive Date: 20130703
  Receipt Date: 20140425
  Transmission Date: 20141212
  Serious: Yes (Other)
  Sender: FDA-Public Use
  Company Number: DE-UCBSA-091016

PATIENT
  Age: 24 Year
  Sex: Female

DRUGS (12)
  1. LEVETIRACETAM [Suspect]
     Indication: EPILEPSY
     Route: 048
     Dates: start: 2013, end: 2013
  2. LEVETIRACETAM [Suspect]
     Indication: EPILEPSY
     Dosage: DAILY DOSE : 3000 MG
     Route: 048
     Dates: start: 2013, end: 2013
  3. LEVETIRACETAM [Suspect]
     Indication: EPILEPSY
     Dosage: DAILY DOSE : 2570 MG
     Route: 048
     Dates: start: 2013
  4. TRIGOA [Concomitant]
  5. FRISIUM [Concomitant]
     Dates: start: 2013, end: 2013
  6. FRISIUM [Concomitant]
     Dosage: DOSE TAPERED
     Dates: start: 2013, end: 20130615
  7. FRISIUM [Concomitant]
     Dosage: DAILY DOSE : 15 MG
     Dates: start: 2013, end: 2013
  8. FRISIUM [Concomitant]
     Dosage: DOSE REDUCED
     Dates: start: 2013
  9. CARBAMAZEPINE [Concomitant]
     Dates: start: 2002, end: 2002
  10. CARBAMAZEPINE [Concomitant]
     Dates: end: 201302
  11. OXCARBAZEPINE [Concomitant]
     Dates: start: 20130624, end: 20130702
  12. OXCARBAZEPINE [Concomitant]
     Dosage: 600-300-600 MG, DAILY DOSE: 1.5 G/DAY
     Dates: start: 20130703

REACTIONS (2)
  - Abortion induced [Unknown]
  - Exposure during pregnancy [Recovered/Resolved]
